FAERS Safety Report 7628508-6 (Version None)
Quarter: 2011Q3

REPORT INFORMATION
  Report Type: 
  Country: None (occurrence: None)
  Receive Date: 20110722
  Receipt Date: 20110713
  Transmission Date: 20111222
  Serious: Yes (Hospitalization, Other)
  Sender: FDA-Public Use
  Company Number: GB-ELI_LILLY_AND_COMPANY-GB201107003365

PATIENT
  Age: 75 Year
  Sex: Male

DRUGS (7)
  1. PREDNISOLONE [Concomitant]
     Dosage: 10 MG, QD
  2. ASPIRIN [Concomitant]
     Dosage: 75 MG, QD
  3. GEMCITABINE HYDROCHLORIDE [Suspect]
     Indication: BLADDER TRANSITIONAL CELL CARCINOMA
     Dosage: 2000 MG, UNKNOWN
     Route: 042
     Dates: start: 20110119, end: 20110126
  4. FINASTERIDE [Concomitant]
     Dosage: 5 MG, UNK
  5. MOVIPREP [Concomitant]
     Dosage: UNK, AS NEEDED
  6. TAMSULOSIN HCL [Concomitant]
     Dosage: 400 UG, QD
  7. CARBOPLATIN [Concomitant]
     Indication: BLADDER TRANSITIONAL CELL CARCINOMA
     Dosage: 330 MG, UNKNOWN
     Route: 042
     Dates: start: 20110119, end: 20110119

REACTIONS (3)
  - ORTHOSTATIC HYPOTENSION [None]
  - DIZZINESS [None]
  - ADRENAL INSUFFICIENCY [None]
